FAERS Safety Report 9850448 (Version 1)
Quarter: 2014Q1

REPORT INFORMATION
  Report Type: Spontaneous
  Country: US (occurrence: None)
  Receive Date: 20140127
  Receipt Date: 20140127
  Transmission Date: 20141002
  Serious: No
  Sender: FDA-Public Use
  Company Number: None

PATIENT
  Age: 57 Year
  Sex: Female
  Weight: 44.45 kg

DRUGS (1)
  1. CARBOPLATIN [Suspect]
     Route: 042
     Dates: start: 20131213, end: 20140124

REACTIONS (7)
  - Feeling hot [None]
  - Cough [None]
  - Dizziness [None]
  - Micturition urgency [None]
  - Erythema [None]
  - Erythema [None]
  - Infusion related reaction [None]
